FAERS Safety Report 8811811 (Version 1)
Quarter: 2012Q4

REPORT INFORMATION
  Report Type: 
  Country: US (occurrence: US)
  Receive Date: 20120927
  Receipt Date: 20120927
  Transmission Date: 20130627
  Serious: Yes (Hospitalization)
  Sender: FDA-Public Use
  Company Number: US-GLAXOSMITHKLINE-A0919253A

PATIENT
  Age: 60 Year
  Sex: Male

DRUGS (1)
  1. MELPHALAN [Suspect]
     Indication: STEM CELL TRANSPLANT
     Dosage: 200MGM2 Unknown
     Route: 065

REACTIONS (1)
  - Febrile neutropenia [Recovered/Resolved]
